FAERS Safety Report 9407610 (Version 1)
Quarter: 2013Q2

REPORT INFORMATION
  Report Type: Spontaneous
  Country: GB (occurrence: None)
  Receive Date: 20130408
  Receipt Date: 20130408
  Transmission Date: 20140414
  Serious: Yes (Hospitalization)
  Sender: FDA-Public Use
  Company Number: FK201301066

PATIENT
  Age: 37 Year
  Sex: Male

DRUGS (3)
  1. CISPLATIN [Suspect]
     Indication: GERM CELL CANCER
  2. BLEOMYCIN [Concomitant]
  3. ETOPOSIDE (ETOPOSIDE) [Concomitant]

REACTIONS (3)
  - Ischaemic stroke [None]
  - Carotid artery dissection [None]
  - Carotid artery stenosis [None]
